FAERS Safety Report 15202207 (Version 1)
Quarter: 2018Q3

REPORT INFORMATION
  Report Type: Spontaneous
  Country: US (occurrence: US)
  Receive Date: 20180627
  Receipt Date: 20180627
  Transmission Date: 20181010
  Serious: No
  Sender: FDA-Public Use
  Company Number: None

PATIENT
  Age: 76 Year
  Sex: Female

DRUGS (4)
  1. MIRTAZIPINE [Suspect]
     Active Substance: MIRTAZAPINE
     Route: 048
  2. DULOXETINE 60MG [Concomitant]
     Active Substance: DULOXETINE
  3. ATORVASTATIN 20MG [Concomitant]
     Active Substance: ATORVASTATIN
  4. PANTOPRAZOLE 40MG [Concomitant]
     Active Substance: PANTOPRAZOLE SODIUM

REACTIONS (3)
  - Product quality issue [None]
  - Abnormal dreams [None]
  - Middle insomnia [None]

NARRATIVE: CASE EVENT DATE: 20180531
